FAERS Safety Report 12402403 (Version 1)
Quarter: 2016Q2

REPORT INFORMATION
  Report Type: Spontaneous
  Country: FR (occurrence: FR)
  Receive Date: 20160525
  Receipt Date: 20160525
  Transmission Date: 20160815
  Serious: Yes (Death, Life-Threatening, Hospitalization, Other)
  Sender: FDA-Public Use
  Company Number: FR-MDT-ADR-2016-00936

PATIENT
  Age: 28 Year
  Sex: Male

DRUGS (3)
  1. ANTIDEPRESSANT [Suspect]
     Active Substance: UNSPECIFIED INGREDIENT
     Route: 065
  2. BENZODIAZEPINE [Suspect]
     Active Substance: BENZODIAZEPINE
     Route: 065
  3. BACLOFEN. [Suspect]
     Active Substance: BACLOFEN
     Route: 065

REACTIONS (6)
  - Intentional product misuse [Unknown]
  - Death [Fatal]
  - Status epilepticus [Unknown]
  - Multiple organ dysfunction syndrome [Unknown]
  - Cardio-respiratory arrest [Recovered/Resolved]
  - Toxicity to various agents [Unknown]
